FAERS Safety Report 21210482 (Version 2)
Quarter: 2023Q1

REPORT INFORMATION
  Report Type: Report from Study
  Country: US (occurrence: US)
  Receive Date: 20220815
  Receipt Date: 20230213
  Transmission Date: 20230417
  Serious: Yes (Other)
  Sender: FDA-Public Use
  Company Number: US-BEH-2022148282

PATIENT
  Age: 69 Year
  Sex: Female
  Weight: 77.098 kg

DRUGS (1)
  1. ZEMAIRA [Suspect]
     Active Substance: .ALPHA.1-PROTEINASE INHIBITOR HUMAN
     Indication: Alpha-1 antitrypsin deficiency
     Dosage: UNK
     Route: 065

REACTIONS (2)
  - Giant cell arteritis [Unknown]
  - Inflammatory marker increased [Unknown]
